FAERS Safety Report 5225900-4 (Version None)
Quarter: 2007Q1

REPORT INFORMATION
  Report Type: 
  Country: None (occurrence: None)
  Receive Date: 20070129
  Receipt Date: 20070116
  Transmission Date: 20070707
  Serious: Yes (Hospitalization)
  Sender: FDA-Public Use
  Company Number: GXKR2007GB00867

PATIENT
  Age: 77 Year
  Sex: Female

DRUGS (19)
  1. METOCLOPRAMIDE [Suspect]
     Indication: NAUSEA
     Dosage: 10 MG, TID, ORAL
     Route: 048
     Dates: start: 20061024, end: 20061027
  2. BUTRANS PATCH(BUPRENORPHINE) [Suspect]
     Indication: PAIN
     Dosage: 5 UG, QH, TRANSDERMAL
     Route: 062
     Dates: start: 20061024, end: 20061027
  3. ASPIRIN [Concomitant]
  4. ATENOLOL [Concomitant]
  5. CALCICHEW D3 (CALCIUM CARBONATE, COLECALCIFEROL) [Concomitant]
  6. CITALOPRAM HYDROBROMIDE [Concomitant]
  7. CLOTRIMAZOLE [Concomitant]
  8. GAVISCON [Concomitant]
  9. HYDROCORTISONE [Concomitant]
  10. LEVOTHYROXINE SODIUM [Concomitant]
  11. METANIUM (TITANIUM DIOXIDE, TITANIUM PEROXIDE, TITANIUM SALICYLATE, TI [Concomitant]
  12. OMEPRAZOLE [Concomitant]
  13. ACETAMINOPHEN [Concomitant]
  14. PERINDOPRIL ERBUMINE [Concomitant]
  15. RISEDRONATE SODIUM [Concomitant]
  16. SENNA (SENNA, SENNA ALEXANDRINA) [Concomitant]
  17. SIMVASTATIN [Concomitant]
  18. TRAMADOL HCL [Concomitant]
  19. FRESENIUS [Concomitant]

REACTIONS (3)
  - HEMIPARESIS [None]
  - HYPERTONIA [None]
  - IMMOBILE [None]
